FAERS Safety Report 9921212 (Version 1)
Quarter: 2014Q1

REPORT INFORMATION
  Report Type: Spontaneous
  Country: US (occurrence: None)
  Receive Date: 20140221
  Receipt Date: 20140221
  Transmission Date: 20141002
  Serious: Yes (Other)
  Sender: FDA-Public Use
  Company Number: None

PATIENT
  Age: 40 Year
  Sex: Female
  Weight: 95.26 kg

DRUGS (3)
  1. NUVARING [Suspect]
     Indication: CONTRACEPTION
     Route: 067
     Dates: start: 20140204, end: 20140204
  2. ALBUTEROL INHALER [Concomitant]
  3. PULMICORT FLEXHALER [Concomitant]

REACTIONS (6)
  - Pruritus [None]
  - Rash generalised [None]
  - Nausea [None]
  - Skin burning sensation [None]
  - Cough [None]
  - Drug ineffective [None]
